FAERS Safety Report 9775967 (Version 1)
Quarter: 2013Q4

REPORT INFORMATION
  Report Type: Spontaneous
  Country: US (occurrence: US)
  Receive Date: 20131220
  Receipt Date: 20131220
  Transmission Date: 20140711
  Serious: No
  Sender: FDA-Public Use
  Company Number: US-SA-2013SA117974

PATIENT
  Sex: Female

DRUGS (1)
  1. THYROGEN [Suspect]
     Indication: PRODUCT USED FOR UNKNOWN INDICATION
     Dosage: FREQUENCY 24 HOURS/2 DOSES
     Route: 065
     Dates: start: 20131111, end: 20131112

REACTIONS (1)
  - Chest pain [Recovered/Resolved]
